FAERS Safety Report 19550412 (Version 1)
Quarter: 2021Q3

REPORT INFORMATION
  Report Type: Spontaneous
  Country: FR (occurrence: FR)
  Receive Date: 20210715
  Receipt Date: 20210715
  Transmission Date: 20211014
  Serious: Yes (Other)
  Sender: FDA-Public Use
  Company Number: FR-TEVA-2021-FR-1931538

PATIENT
  Age: 23 Year
  Sex: Female
  Weight: 40 kg

DRUGS (1)
  1. EVEROLIMUS. [Suspect]
     Active Substance: EVEROLIMUS
     Indication: HEART TRANSPLANT
     Dates: start: 2020

REACTIONS (1)
  - Alveolar proteinosis [Recovering/Resolving]

NARRATIVE: CASE EVENT DATE: 202105
